FAERS Safety Report 22134757 (Version 2)
Quarter: 2023Q1

REPORT INFORMATION
  Report Type: Report from Study
  Country: BR (occurrence: BR)
  Receive Date: 20230324
  Receipt Date: 20230330
  Transmission Date: 20230417
  Serious: Yes (Death, Hospitalization, Other)
  Sender: FDA-Public Use
  Company Number: BR-002147023-NVSC2022BR298175

PATIENT
  Age: 54 Year
  Sex: Female

DRUGS (3)
  1. KISQALI [Suspect]
     Active Substance: RIBOCICLIB
     Indication: Breast cancer
     Dosage: UNK (MANUFACTURING DATE OCT 2021)
     Route: 065
  2. KISQALI [Suspect]
     Active Substance: RIBOCICLIB
     Dosage: UNK
     Route: 065
  3. KISQALI [Suspect]
     Active Substance: RIBOCICLIB
     Dosage: UNK
     Route: 065

REACTIONS (16)
  - Death [Fatal]
  - Pulmonary oedema [Unknown]
  - Fatigue [Unknown]
  - Metastases to bone [Unknown]
  - Feeling hot [Unknown]
  - Injury [Unknown]
  - Swelling [Unknown]
  - Abdominal discomfort [Unknown]
  - Feeding disorder [Recovering/Resolving]
  - Cardiac disorder [Unknown]
  - Faeces hard [Unknown]
  - Faeces discoloured [Recovering/Resolving]
  - Pruritus [Unknown]
  - Vomiting [Recovered/Resolved]
  - Asthenia [Not Recovered/Not Resolved]
  - Platelet count decreased [Unknown]

NARRATIVE: CASE EVENT DATE: 20230326
